FAERS Safety Report 9913496 (Version 1)
Quarter: 2014Q1

REPORT INFORMATION
  Report Type: Spontaneous
  Country: TH (occurrence: None)
  Receive Date: 20140218
  Receipt Date: 20140218
  Transmission Date: 20141002
  Serious: Yes (Other)
  Sender: FDA-Public Use
  Company Number: 2014P1001100

PATIENT
  Age: 40 Year
  Sex: Female

DRUGS (4)
  1. NEVIRAPINE [Suspect]
     Indication: HIV INFECTION
     Dates: start: 2010
  2. LAMIVUDINE [Suspect]
     Indication: HIV INFECTION
     Dates: start: 2010
  3. STAVUDINE [Suspect]
     Dates: start: 2010
  4. GANCICLOVIR [Concomitant]

REACTIONS (4)
  - Visual acuity reduced [None]
  - Cystoid macular oedema [None]
  - Retinal vasculitis [None]
  - Uveitis [None]
